FAERS Safety Report 9014809 (Version 1)
Quarter: 2013Q1

REPORT INFORMATION
  Report Type: Spontaneous
  Country: US (occurrence: US)
  Receive Date: 20130115
  Receipt Date: 20130115
  Transmission Date: 20140127
  Serious: No
  Sender: FDA-Public Use
  Company Number: US-B.I. PHARMACEUTICALS,INC./RIDGEFIELD-2012-BI-04517BP

PATIENT
  Age: 80 Year
  Sex: Male
  Weight: 109 kg

DRUGS (1)
  1. AGGRENOX [Suspect]
     Indication: ISCHAEMIC HEART DISEASE PROPHYLAXIS
     Route: 048
     Dates: start: 20120428, end: 20121226

REACTIONS (3)
  - Diarrhoea [Not Recovered/Not Resolved]
  - Vomiting [Recovered/Resolved]
  - Diarrhoea haemorrhagic [Not Recovered/Not Resolved]
